FAERS Safety Report 5426801-9 (Version None)
Quarter: 2007Q3

REPORT INFORMATION
  Report Type: 
  Country: None (occurrence: None)
  Receive Date: 20070827
  Receipt Date: 20070522
  Transmission Date: 20080115
  Serious: No
  Sender: FDA-Public Use
  Company Number: US-BOEHRINGER INGELHEIM PHARMACEUTICALS, INC.-2007-BP-04442BP

PATIENT
  Age: 83 Year
  Sex: Female

DRUGS (12)
  1. CATAPRES-TTS-1 [Suspect]
     Indication: HYPERTENSION
     Route: 061
     Dates: start: 20060101, end: 20070319
  2. CATAPRES-TTS-1 [Suspect]
     Route: 048
  3. ALTACE [Concomitant]
     Indication: HYPERTENSION
     Route: 048
  4. SULAR [Concomitant]
     Indication: HYPERTENSION
     Route: 048
  5. ACTONEL [Concomitant]
  6. GLIMEPIRIDE [Concomitant]
  7. ZYRTEC [Concomitant]
  8. LIPITOR [Concomitant]
  9. PAROXETINE HCL [Concomitant]
  10. OSCAL [Concomitant]
  11. CITRACAL [Concomitant]
  12. GLYBURIDE [Concomitant]

REACTIONS (3)
  - APPLICATION SITE EXCORIATION [None]
  - APPLICATION SITE PRURITUS [None]
  - ERYTHEMA [None]
